FAERS Safety Report 5622329-1 (Version None)
Quarter: 2008Q1

REPORT INFORMATION
  Report Type: 
  Country: None (occurrence: None)
  Receive Date: 20080211
  Receipt Date: 20080130
  Transmission Date: 20080703
  Serious: Yes (Other)
  Sender: FDA-Public Use
  Company Number: BR-PFIZER INC-2008010797

PATIENT
  Age: 80 Year
  Sex: Male

DRUGS (4)
  1. REVATIO [Suspect]
     Route: 048
  2. MODURETIC 5-50 [Concomitant]
     Route: 048
  3. PANTOPRAZOLE [Concomitant]
  4. FORASEQ [Concomitant]

REACTIONS (3)
  - CATARACT [None]
  - SWELLING [None]
  - VISUAL ACUITY REDUCED [None]
